FAERS Safety Report 11189695 (Version 1)
Quarter: 2015Q2

REPORT INFORMATION
  Report Type: Spontaneous
  Country: FR (occurrence: FR)
  Receive Date: 20150615
  Receipt Date: 20150615
  Transmission Date: 20150821
  Serious: Yes (Hospitalization, Other)
  Sender: FDA-Public Use
  Company Number: FR-BRISTOL-MYERS SQUIBB COMPANY-BMS-2015-036935

PATIENT
  Age: 91 Year
  Sex: Female
  Weight: 43 kg

DRUGS (3)
  1. FUROSEMIDE                         /00032602/ [Concomitant]
     Active Substance: FUROSEMIDE
     Indication: PRODUCT USED FOR UNKNOWN INDICATION
     Dosage: 40 MG, QD
     Route: 048
  2. BISOPROLOL [Concomitant]
     Active Substance: BISOPROLOL
     Indication: PRODUCT USED FOR UNKNOWN INDICATION
     Dosage: 2.5 MG, QD
     Route: 048
  3. COUMADINE [Suspect]
     Active Substance: WARFARIN SODIUM
     Indication: CEREBROVASCULAR ACCIDENT PROPHYLAXIS
     Dosage: 2 MG, UNK
     Route: 048

REACTIONS (5)
  - Lung disorder [Unknown]
  - Intra-abdominal haematoma [Recovering/Resolving]
  - Haemorrhagic anaemia [Recovering/Resolving]
  - International normalised ratio increased [Unknown]
  - Peripheral artery thrombosis [Unknown]

NARRATIVE: CASE EVENT DATE: 20150515
